FAERS Safety Report 11238713 (Version 1)
Quarter: 2015Q3

REPORT INFORMATION
  Report Type: Report from Study
  Country: CA (occurrence: CA)
  Receive Date: 20150706
  Receipt Date: 20150706
  Transmission Date: 20151125
  Serious: Yes (Death)
  Sender: FDA-Public Use
  Company Number: PHHY2015CA053589

PATIENT
  Age: 65 Year
  Sex: Male

DRUGS (1)
  1. ZOMETA [Suspect]
     Active Substance: ZOLEDRONIC ACID
     Indication: METASTASES TO BONE
     Dosage: 3.5 MG, EVEY 4 WEEKS
     Route: 042
     Dates: start: 20150509, end: 20150623

REACTIONS (2)
  - Death [Fatal]
  - Blood calcium increased [Unknown]

NARRATIVE: CASE EVENT DATE: 20150630
